FAERS Safety Report 18302073 (Version 3)
Quarter: 2020Q4

REPORT INFORMATION
  Report Type: Spontaneous
  Country: RU (occurrence: RU)
  Receive Date: 20200923
  Receipt Date: 20201104
  Transmission Date: 20210113
  Serious: Yes (Hospitalization)
  Sender: FDA-Public Use
  Company Number: RU-HIKMA PHARMACEUTICALS USA INC.-RU-H14001-20-04008

PATIENT
  Age: 58 Year
  Sex: Female

DRUGS (31)
  1. ADEMETIONINE [Concomitant]
     Active Substance: ADEMETIONINE
     Indication: PRODUCT USED FOR UNKNOWN INDICATION
     Dosage: UNKNOWN
     Route: 065
     Dates: start: 20200416
  2. ERALFON [Concomitant]
     Indication: PRODUCT USED FOR UNKNOWN INDICATION
     Dosage: UNKNOWN
     Route: 065
     Dates: start: 20200803
  3. FILTRUM STI [Concomitant]
     Indication: PRODUCT USED FOR UNKNOWN INDICATION
     Dosage: UNKNOWN
     Route: 065
     Dates: start: 20200708, end: 20200802
  4. FORTRANS [Concomitant]
     Active Substance: POLYETHYLENE GLYCOL 4000\POTASSIUM CHLORIDE\SODIUM BICARBONATE\SODIUM CHLORIDE\SODIUM SULFATE
     Dosage: UNKNOWN
     Route: 065
     Dates: start: 20200805, end: 20200814
  5. BEVACIZUMAB. [Suspect]
     Active Substance: BEVACIZUMAB
     Indication: PRODUCT USED FOR UNKNOWN INDICATION
     Dosage: UNKNOWN
     Route: 065
  6. VITAMIN B1 [Concomitant]
     Active Substance: THIAMINE HYDROCHLORIDE
     Dosage: UNKNOWN
     Route: 065
     Dates: start: 20200805, end: 20200814
  7. TRANEXAM [Concomitant]
     Active Substance: TRANEXAMIC ACID
     Indication: PRODUCT USED FOR UNKNOWN INDICATION
     Dosage: UNKNOWN
     Route: 065
     Dates: start: 20200803, end: 20200805
  8. NISE [Concomitant]
     Active Substance: NIMESULIDE
     Indication: PRODUCT USED FOR UNKNOWN INDICATION
     Dosage: UNKNOWN
     Route: 065
     Dates: start: 202001
  9. VITAMIN B6 [Concomitant]
     Active Substance: PYRIDOXINE HYDROCHLORIDE
     Indication: PRODUCT USED FOR UNKNOWN INDICATION
     Dosage: UNKNOWN
     Route: 065
     Dates: start: 20200805, end: 20200814
  10. VITAMIN B6 [Concomitant]
     Active Substance: PYRIDOXINE HYDROCHLORIDE
     Dosage: UNKNOWN
     Route: 065
     Dates: start: 20200805, end: 20200814
  11. VITAMIN C [Concomitant]
     Active Substance: ASCORBIC ACID
     Dosage: UNKNOWN
     Route: 065
     Dates: start: 20200805, end: 20200814
  12. FOLINIC ACID [Concomitant]
     Active Substance: LEUCOVORIN
     Indication: PRODUCT USED FOR UNKNOWN INDICATION
     Dosage: UNKNOWN
     Route: 065
     Dates: start: 20200520
  13. PACLITAXEL. [Suspect]
     Active Substance: PACLITAXEL
     Indication: PRODUCT USED FOR UNKNOWN INDICATION
     Dosage: UNKNOWN
     Route: 065
  14. FERRUM [Concomitant]
     Active Substance: FERROUS FUMARATE
     Indication: PRODUCT USED FOR UNKNOWN INDICATION
     Dosage: UNKNOWN
     Route: 065
     Dates: start: 20200520
  15. EUTHYROX [Concomitant]
     Active Substance: LEVOTHYROXINE SODIUM
     Indication: PRODUCT USED FOR UNKNOWN INDICATION
     Dosage: UNKNOWN
     Route: 065
     Dates: start: 20200710
  16. KCL [Concomitant]
     Active Substance: POTASSIUM CHLORIDE
     Indication: PRODUCT USED FOR UNKNOWN INDICATION
     Dosage: UNKNOWN
     Route: 065
     Dates: start: 20200805, end: 20200812
  17. NACL [Concomitant]
     Active Substance: SODIUM CHLORIDE
     Dosage: UNKNOWN
     Route: 065
     Dates: start: 20200805, end: 20200814
  18. ENALAPRIL [Concomitant]
     Active Substance: ENALAPRIL
     Indication: PRODUCT USED FOR UNKNOWN INDICATION
     Dosage: UNKNOWN
     Route: 065
     Dates: start: 2019
  19. HEPTRAL [Concomitant]
     Active Substance: ADEMETIONINE
     Indication: PRODUCT USED FOR UNKNOWN INDICATION
     Dosage: UNKNOWN
     Route: 065
     Dates: start: 20200410
  20. ASPARCAM [Concomitant]
     Indication: PRODUCT USED FOR UNKNOWN INDICATION
     Dosage: UNKNOWN
     Route: 065
     Dates: start: 20200429
  21. TRANEXAM [Concomitant]
     Active Substance: TRANEXAMIC ACID
     Dosage: UNKNOWN
     Route: 065
     Dates: start: 20200805, end: 20200814
  22. CARBOPLATIN. [Suspect]
     Active Substance: CARBOPLATIN
     Dosage: 407
     Route: 042
     Dates: start: 20200617, end: 20200617
  23. VITAMIN B12 [Concomitant]
     Active Substance: CYANOCOBALAMIN
     Indication: PRODUCT USED FOR UNKNOWN INDICATION
     Dosage: UNKNOWN
     Route: 065
     Dates: start: 20200803
  24. OMEZ [Concomitant]
     Active Substance: OMEPRAZOLE
     Indication: PRODUCT USED FOR UNKNOWN INDICATION
     Dosage: UNKNOWN
     Route: 065
     Dates: start: 20200406
  25. RINGERS SOLUTION [Concomitant]
     Active Substance: CALCIUM CHLORIDE\POTASSIUM CHLORIDE\SODIUM CHLORIDE
     Indication: PRODUCT USED FOR UNKNOWN INDICATION
     Dosage: UNKNOWN
     Route: 065
     Dates: start: 20200805
  26. FORTRANS [Concomitant]
     Active Substance: POLYETHYLENE GLYCOL 4000\POTASSIUM CHLORIDE\SODIUM BICARBONATE\SODIUM CHLORIDE\SODIUM SULFATE
     Indication: PRODUCT USED FOR UNKNOWN INDICATION
     Dosage: UNKNOWN
     Route: 065
     Dates: start: 20200805, end: 20200806
  27. NACL [Concomitant]
     Active Substance: SODIUM CHLORIDE
     Indication: PRODUCT USED FOR UNKNOWN INDICATION
     Dosage: UNKNOWN
     Route: 065
     Dates: start: 20200810, end: 20200812
  28. VITAMIN C [Concomitant]
     Active Substance: ASCORBIC ACID
     Indication: PRODUCT USED FOR UNKNOWN INDICATION
     Dosage: UNKNOWN
     Route: 065
     Dates: start: 20200810, end: 20200812
  29. FOLINIC ACID [Concomitant]
     Active Substance: LEUCOVORIN
     Dosage: UNKNOWN
     Route: 065
     Dates: start: 20200805, end: 20200814
  30. CARBOPLATIN. [Suspect]
     Active Substance: CARBOPLATIN
     Indication: CERVIX CARCINOMA
     Dosage: 448
     Route: 042
     Dates: start: 20200409, end: 20200409
  31. VITAMIN B1 [Concomitant]
     Active Substance: THIAMINE HYDROCHLORIDE
     Indication: PRODUCT USED FOR UNKNOWN INDICATION
     Dosage: UNKNOWN
     Route: 065
     Dates: start: 20200805, end: 20200814

REACTIONS (3)
  - Pneumonitis [Recovered/Resolved]
  - Anaemia [Recovering/Resolving]
  - Condition aggravated [Recovering/Resolving]

NARRATIVE: CASE EVENT DATE: 20200803
